FAERS Safety Report 25820427 (Version 1)
Quarter: 2025Q3

REPORT INFORMATION
  Report Type: Spontaneous
  Country: EU (occurrence: EU)
  Receive Date: 20250919
  Receipt Date: 20250919
  Transmission Date: 20251021
  Serious: Yes (Death)
  Sender: CELLTRION
  Company Number: EU-SAMSUNG BIOEPIS-SB-2025-29742

PATIENT

DRUGS (3)
  1. BEVACIZUMAB [Suspect]
     Active Substance: BEVACIZUMAB
     Indication: Vaginal cancer metastatic
     Dosage: 15 MILLIGRAM/SQ. METER, 3/WEEK
  2. CARBOPLATIN [Suspect]
     Active Substance: CARBOPLATIN
     Indication: Vaginal cancer metastatic
     Dosage: CARBOPLATIN AUC 5; 3/WEEK
  3. PACLITAXEL [Suspect]
     Active Substance: PACLITAXEL
     Indication: Vaginal cancer metastatic
     Dosage: 135 MILLIGRAM/SQ. METER, 3/WEEK

REACTIONS (2)
  - Disease progression [Fatal]
  - Off label use [Unknown]
